FAERS Safety Report 5993527-2 (Version None)
Quarter: 2008Q4

REPORT INFORMATION
  Report Type: 
  Country: None (occurrence: None)
  Receive Date: 20081212
  Receipt Date: 20081202
  Transmission Date: 20090506
  Serious: Yes (Life-Threatening, Hospitalization)
  Sender: FDA-Public Use
  Company Number: US-JNJFOC-20080500558

PATIENT
  Sex: Female

DRUGS (2)
  1. INFLIXIMAB [Suspect]
     Indication: PSORIATIC ARTHROPATHY
     Route: 042
  2. INFLIXIMAB [Suspect]
     Indication: PSORIASIS
     Route: 042

REACTIONS (6)
  - ABDOMINAL PAIN [None]
  - ANAEMIA [None]
  - LOSS OF CONSCIOUSNESS [None]
  - OVARIAN CANCER [None]
  - UTERINE DISORDER [None]
  - VAGINAL HAEMORRHAGE [None]
